FAERS Safety Report 15837820 (Version 3)
Quarter: 2019Q1

REPORT INFORMATION
  Report Type: Spontaneous
  Country: US (occurrence: US)
  Receive Date: 20190117
  Receipt Date: 20190314
  Transmission Date: 20190417
  Serious: No
  Sender: FDA-Public Use
  Company Number: US-GLAXOSMITHKLINE-US2019003420

PATIENT
  Sex: Female
  Weight: 97 kg

DRUGS (2)
  1. VENTOLIN HFA [Suspect]
     Active Substance: ALBUTEROL SULFATE
     Indication: PRODUCT USED FOR UNKNOWN INDICATION
     Dosage: 2 PUFF(S), UNK
     Route: 055
     Dates: start: 20171201
  2. NEBULIZER SOLUTION (MEDICATION UNKNOWN) [Suspect]
     Active Substance: UNSPECIFIED INGREDIENT

REACTIONS (4)
  - Overdose [Unknown]
  - Circumstance or information capable of leading to medication error [Unknown]
  - Wrong technique in device usage process [Unknown]
  - Product complaint [Unknown]
